FAERS Safety Report 18202161 (Version 2)
Quarter: 2020Q4

REPORT INFORMATION
  Report Type: Spontaneous
  Country: US (occurrence: US)
  Receive Date: 20200827
  Receipt Date: 20201020
  Transmission Date: 20210113
  Serious: No
  Sender: FDA-Public Use
  Company Number: US-PFIZER INC-2020330354

PATIENT
  Age: 69 Year
  Sex: Female

DRUGS (2)
  1. IBRANCE [Suspect]
     Active Substance: PALBOCICLIB
     Dosage: 100 MG
     Route: 048
     Dates: start: 202010
  2. IBRANCE [Suspect]
     Active Substance: PALBOCICLIB
     Indication: BREAST CANCER FEMALE
     Dosage: 125 MG, CYCLIC (1 PO (ORAL) QD (ONCE A DAY) DAYS X 21 DAYS ON; 7 DAYS OFF)
     Route: 048
     Dates: start: 20200712, end: 20200819

REACTIONS (2)
  - White blood cell count decreased [Unknown]
  - Fatigue [Recovering/Resolving]
